FAERS Safety Report 6073210-8 (Version None)
Quarter: 2009Q1

REPORT INFORMATION
  Report Type: 
  Country: None (occurrence: None)
  Receive Date: 20090205
  Receipt Date: 20090129
  Transmission Date: 20090719
  Serious: Yes (Death)
  Sender: FDA-Public Use
  Company Number: 2009JP000523

PATIENT
  Age: 54 Year
  Sex: Male

DRUGS (4)
  1. PROGRAF [Suspect]
     Indication: STEM CELL TRANSPLANT
  2. CYTARABINE [Concomitant]
  3. L-PAM (MELPHALAN) [Concomitant]
  4. METHOTREXATE FORMULATION UNKNOWN [Concomitant]

REACTIONS (2)
  - ENGRAFT FAILURE [None]
  - THROMBOTIC MICROANGIOPATHY [None]
